FAERS Safety Report 10010785 (Version 2)
Quarter: 2014Q2

REPORT INFORMATION
  Report Type: Spontaneous
  Country: US (occurrence: US)
  Receive Date: 20140314
  Receipt Date: 20140428
  Transmission Date: 20141212
  Serious: No
  Sender: FDA-Public Use
  Company Number: US-009507513-1403USA005002

PATIENT
  Sex: Female
  Weight: 44.9 kg

DRUGS (6)
  1. PROVENTIL [Suspect]
     Indication: EMPHYSEMA
     Dosage: 1 TO 2 PUFFS FOUR TIMES A DAY AS NEEDED, MDI
     Route: 055
     Dates: start: 201003
  2. PROVENTIL [Suspect]
     Dosage: 1 TO 2 PUFFS FOUR TIMES A DAY AS NEEDED, MDI
     Route: 055
     Dates: start: 2014, end: 2014
  3. COUMADIN [Concomitant]
     Dosage: UNK
  4. TENORMIN [Concomitant]
     Dosage: UNK
  5. RESTORIL (CHLORMEZANONE) [Concomitant]
     Dosage: UNK
  6. XANAX [Concomitant]
     Dosage: UNK, PRN

REACTIONS (2)
  - Therapeutic response decreased [Recovering/Resolving]
  - Product quality issue [Unknown]
